FAERS Safety Report 9613242 (Version 3)
Quarter: 2013Q4

REPORT INFORMATION
  Report Type: Spontaneous
  Country: FI (occurrence: FI)
  Receive Date: 20131010
  Receipt Date: 20131122
  Transmission Date: 20140711
  Serious: Yes (Other)
  Sender: FDA-Public Use
  Company Number: FI-GLAXOSMITHKLINE-B0928936A

PATIENT
  Age: 54 Year
  Sex: Female

DRUGS (2)
  1. VENTOLIN [Suspect]
     Indication: LUNG DISORDER
     Dosage: .4MGML TWICE PER DAY
     Route: 055
     Dates: start: 20130927
  2. KEFEXIN [Suspect]
     Indication: LOCALISED INFECTION
     Route: 048
     Dates: start: 20130927

REACTIONS (15)
  - Loss of consciousness [Recovered/Resolved]
  - Pruritus [Recovered/Resolved]
  - Chest discomfort [Recovered/Resolved]
  - Flushing [Recovered/Resolved]
  - Urticaria [Recovered/Resolved]
  - Hypotension [Recovered/Resolved]
  - Pallor [Recovered/Resolved]
  - Oxygen saturation decreased [Recovered/Resolved]
  - Cardiomegaly [Recovered/Resolved]
  - Fear [Recovered/Resolved]
  - Erythema [Recovered/Resolved]
  - Malaise [Recovered/Resolved]
  - Paraesthesia [Recovered/Resolved]
  - Syncope [Recovered/Resolved]
  - Drug interaction [Unknown]
